FAERS Safety Report 25797269 (Version 3)
Quarter: 2025Q3

REPORT INFORMATION
  Report Type: Spontaneous
  Country: US (occurrence: US)
  Receive Date: 20250912
  Receipt Date: 20250930
  Transmission Date: 20251021
  Serious: No
  Sender: BLUEPRINT MEDICINES
  Company Number: US-Blueprint Medicines Corporation-2025-AER-01960

PATIENT
  Age: 74 Year
  Sex: Female

DRUGS (1)
  1. AYVAKIT [Suspect]
     Active Substance: AVAPRITINIB
     Indication: Systemic mastocytosis
     Route: 065
     Dates: start: 20250829

REACTIONS (13)
  - Fatigue [Unknown]
  - Abdominal pain upper [Unknown]
  - Constipation [Unknown]
  - Headache [Unknown]
  - Flushing [Unknown]
  - Hyperhidrosis [Unknown]
  - Hot flush [Unknown]
  - Nausea [Recovered/Resolved]
  - Malaise [Unknown]
  - Chills [Unknown]
  - Bone pain [Unknown]
  - Pain [Unknown]
  - Product physical issue [Unknown]
